FAERS Safety Report 10982100 (Version 1)
Quarter: 2015Q2

REPORT INFORMATION
  Report Type: Spontaneous
  Country: US (occurrence: US)
  Receive Date: 20150403
  Receipt Date: 20150403
  Transmission Date: 20150821
  Serious: No
  Sender: FDA-Public Use
  Company Number: US-009507513-1503USA015157

PATIENT

DRUGS (1)
  1. HEXADROL [Suspect]
     Active Substance: DEXAMETHASONE
     Dosage: A LOT OF(EXACT DOSAGE UNKNOWN)
     Route: 048

REACTIONS (2)
  - Psychotic disorder [Unknown]
  - Mania [Unknown]
